FAERS Safety Report 26191462 (Version 1)
Quarter: 2025Q4

REPORT INFORMATION
  Report Type: Spontaneous
  Country: US (occurrence: US)
  Receive Date: 20251223
  Receipt Date: 20251223
  Transmission Date: 20260118
  Serious: Yes (Death, Hospitalization)
  Sender: SHILPA MEDICARE LIMITED
  Company Number: US-KOANAAP-SML-US-2025-0012

PATIENT

DRUGS (3)
  1. IMATINIB [Suspect]
     Active Substance: IMATINIB
     Indication: Gastrointestinal stromal tumour
  2. SUNITINIB [Suspect]
     Active Substance: SUNITINIB
     Indication: Gastrointestinal stromal tumour
  3. RIPRETINIB [Suspect]
     Active Substance: RIPRETINIB
     Indication: Gastrointestinal stromal tumour

REACTIONS (13)
  - Disseminated intravascular coagulation [Fatal]
  - Gingival bleeding [Unknown]
  - Coagulopathy [Unknown]
  - Red blood cell schistocytes [Unknown]
  - Pulmonary embolism [Unknown]
  - Tumour thrombosis [Unknown]
  - Disease progression [Unknown]
  - Drug ineffective [Unknown]
  - Melaena [Unknown]
  - Thrombocytopenia [Unknown]
  - Haematuria [Unknown]
  - Bicytopenia [Unknown]
  - Haemorrhage intracranial [Unknown]
